FAERS Safety Report 20806482 (Version 1)
Quarter: 2022Q2

REPORT INFORMATION
  Report Type: Spontaneous
  Country: US (occurrence: US)
  Receive Date: 20220510
  Receipt Date: 20220510
  Transmission Date: 20220720
  Serious: No
  Sender: FDA-Public Use
  Company Number: US-ALLERGAN-2210448US

PATIENT

DRUGS (1)
  1. VUITY [Suspect]
     Active Substance: PILOCARPINE HYDROCHLORIDE
     Indication: Vision blurred
     Dosage: 2 GTT, QD
     Route: 047
     Dates: start: 20220325

REACTIONS (3)
  - Headache [Unknown]
  - Vision blurred [Unknown]
  - Drug ineffective [Unknown]
